FAERS Safety Report 6932185-7 (Version None)
Quarter: 2010Q3

REPORT INFORMATION
  Report Type: 
  Country: None (occurrence: None)
  Receive Date: 20100819
  Receipt Date: 20100813
  Transmission Date: 20110219
  Serious: Yes (Other)
  Sender: FDA-Public Use
  Company Number: D0068615A

PATIENT
  Sex: Male

DRUGS (3)
  1. ARIXTRA [Suspect]
     Route: 058
  2. UNFRACTIONATED HEPARIN [Concomitant]
     Route: 058
  3. LOW MOLECULAR WEIGHT HEPARIN [Concomitant]
     Route: 058

REACTIONS (3)
  - DEEP VEIN THROMBOSIS [None]
  - GENERAL PHYSICAL HEALTH DETERIORATION [None]
  - THROMBOCYTOPENIA [None]
